FAERS Safety Report 9888967 (Version 1)
Quarter: 2014Q1

REPORT INFORMATION
  Report Type: Spontaneous
  Country: US (occurrence: None)
  Receive Date: 20140210
  Receipt Date: 20140210
  Transmission Date: 20141002
  Serious: Yes (Life-Threatening, Disabling)
  Sender: FDA-Public Use
  Company Number: None

PATIENT
  Age: 60 Year
  Sex: Male
  Weight: 84.37 kg

DRUGS (1)
  1. ANDROGEL 1% [Suspect]
     Indication: BLOOD TESTOSTERONE DECREASED
     Dosage: 12.5MG PER PUMP?THREE TIMES DAILY?APPLIED TO A SURFACE, USUALLY THE SKIN
     Dates: start: 20110101, end: 20131101

REACTIONS (3)
  - Thrombosis [None]
  - Chest pain [None]
  - Breast pain [None]
